FAERS Safety Report 20439516 (Version 2)
Quarter: 2022Q1

REPORT INFORMATION
  Report Type: Spontaneous
  Country: US (occurrence: US)
  Receive Date: 20220207
  Receipt Date: 20220309
  Transmission Date: 20220424
  Serious: Yes (Death, Hospitalization)
  Sender: FDA-Public Use
  Company Number: US-SAOL THERAPEUTICS-2022SAO00023

PATIENT
  Age: 18 Year
  Sex: Male
  Weight: 38.549 kg

DRUGS (4)
  1. LIORESAL [Suspect]
     Active Substance: BACLOFEN
     Dosage: 1445 ?G, \DAY
     Route: 037
     Dates: end: 20220121
  2. LIORESAL [Suspect]
     Active Substance: BACLOFEN
     Dosage: 970 ?G, \DAY
     Route: 037
     Dates: start: 20220121
  3. GABLOFEN [Suspect]
     Active Substance: BACLOFEN
     Dosage: 1446.9 ?G, \DAY (ALSO PREVIOULSY REPORTED AS 1445 ?G/DAY)
     Route: 037
     Dates: end: 20220121
  4. GABLOFEN [Suspect]
     Active Substance: BACLOFEN
     Dosage: 970 ?G, \DAY
     Dates: start: 20220121

REACTIONS (4)
  - Pneumonia [Fatal]
  - COVID-19 [Fatal]
  - Sepsis [Fatal]
  - Cardiac arrest [Recovered/Resolved]

NARRATIVE: CASE EVENT DATE: 20220121
